FAERS Safety Report 11234866 (Version 2)
Quarter: 2015Q3

REPORT INFORMATION
  Report Type: Spontaneous
  Country: US (occurrence: US)
  Receive Date: 20150702
  Receipt Date: 20150818
  Transmission Date: 20151125
  Serious: Yes (Hospitalization)
  Sender: FDA-Public Use
  Company Number: US-BRACCO-012262

PATIENT
  Age: 60 Year
  Sex: Male

DRUGS (5)
  1. DIOVAN [Concomitant]
     Active Substance: VALSARTAN
  2. ASA [Concomitant]
     Active Substance: ASPIRIN
  3. AMLODIPINE [Concomitant]
     Active Substance: AMLODIPINE BESYLATE
  4. MULTIHANCE [Suspect]
     Active Substance: GADOBENATE DIMEGLUMINE
     Indication: NUCLEAR MAGNETIC RESONANCE IMAGING
     Dates: start: 20150410, end: 20150410
  5. ATENOLOL. [Concomitant]
     Active Substance: ATENOLOL

REACTIONS (3)
  - Chest discomfort [Recovered/Resolved]
  - Cardiac arrest [Recovered/Resolved]
  - Wheezing [Recovered/Resolved]

NARRATIVE: CASE EVENT DATE: 20150410
